FAERS Safety Report 5789001-9 (Version None)
Quarter: 2008Q2

REPORT INFORMATION
  Report Type: 
  Country: None (occurrence: None)
  Receive Date: 20080626
  Receipt Date: 20080620
  Transmission Date: 20081010
  Serious: Yes (Other)
  Sender: FDA-Public Use
  Company Number: HQWYE101814JUL04

PATIENT
  Sex: Female
  Weight: 77.18 kg

DRUGS (4)
  1. PREMPRO [Suspect]
     Indication: HORMONE REPLACEMENT THERAPY
  2. PROVERA [Suspect]
     Indication: HORMONE REPLACEMENT THERAPY
  3. AMEN [Suspect]
  4. PREMARIN [Suspect]

REACTIONS (1)
  - BREAST CANCER METASTATIC [None]
